FAERS Safety Report 8905556 (Version 3)
Quarter: 2012Q4

REPORT INFORMATION
  Report Type: 
  Country: US (occurrence: US)
  Receive Date: 20121111
  Receipt Date: 20121212
  Transmission Date: 20130627
  Serious: Yes (Death, Life-Threatening, Hospitalization, Other)
  Sender: FDA-Public Use
  Company Number: PHEH2012US022181

PATIENT
  Sex: Male

DRUGS (6)
  1. EXJADE [Suspect]
     Indication: IRON OVERLOAD
     Dosage: 500 mg, BID
     Route: 048
  2. ACYCLOVIR [Concomitant]
     Indication: PROPHYLAXIS
     Dosage: 400 mg, BID
     Route: 048
  3. ASA [Concomitant]
     Dosage: 81 mg, UNK
     Route: 048
  4. BACTRIUM DS [Concomitant]
     Dosage: UNK UKN, UNK
  5. HYDREA [Concomitant]
     Indication: MYELOFIBROSIS
     Dosage: 1500 mg, UNK
  6. DECADRAN [Concomitant]
     Indication: MYELOFIBROSIS
     Dosage: 4 mg, QD
     Route: 048

REACTIONS (12)
  - Malignant neoplasm progression [Fatal]
  - Central nervous system infection [Unknown]
  - Terminal state [Unknown]
  - General physical health deterioration [Unknown]
  - Cerebrovascular accident [Unknown]
  - Zygomycosis [Unknown]
  - Thrombosis [Unknown]
  - Aneurysm [Unknown]
  - Infarction [Unknown]
  - Haemoglobin decreased [Unknown]
  - Haematocrit decreased [Unknown]
  - No therapeutic response [Unknown]
